FAERS Safety Report 8500208-X (Version None)
Quarter: 2012Q3

REPORT INFORMATION
  Report Type: 
  Country: None (occurrence: None)
  Receive Date: 20120710
  Receipt Date: 20120706
  Transmission Date: 20120928
  Serious: No
  Sender: FDA-Public Use
  Company Number: US-PFIZER INC-2012153542

PATIENT
  Sex: Female

DRUGS (4)
  1. NEURONTIN [Suspect]
  2. GLUCOTROL [Suspect]
  3. NORVASC [Suspect]
  4. LIPITOR [Suspect]

REACTIONS (1)
  - NO ADVERSE EVENT [None]
